FAERS Safety Report 9350026 (Version 5)
Quarter: 2013Q3

REPORT INFORMATION
  Report Type: Report from Study
  Country: FR (occurrence: FR)
  Receive Date: 20130615
  Receipt Date: 20130826
  Transmission Date: 20140515
  Serious: Yes (Hospitalization, Other)
  Sender: FDA-Public Use
  Company Number: FR-GENZYME-CAMP-1002968

PATIENT
  Age: 82 Year
  Sex: Male
  Weight: 70.2 kg

DRUGS (7)
  1. CAMPATH [Suspect]
     Indication: B-CELL PROLYMPHOCYTIC LEUKAEMIA
     Dosage: 30 MG, 3X/W (ON MONDAY, ON WEDNESDAY AND ON FRIDAY)
     Route: 058
     Dates: start: 20130304, end: 20130401
  2. CAMPATH [Suspect]
     Dosage: 10-30 MG, 3 INJECTIONS PER WEEK
     Route: 058
     Dates: start: 20130418, end: 20130422
  3. CAMPATH [Suspect]
     Dosage: 10-30 MG, 3 INJECTIONS PER WEEK (18 COURSES)
     Route: 058
     Dates: start: 20130506, end: 20130712
  4. CORTANCYL [Suspect]
     Indication: B-CELL PROLYMPHOCYTIC LEUKAEMIA
     Dosage: 20 MG, QD
     Route: 065
     Dates: start: 20130227
  5. CORTANCYL [Suspect]
     Dosage: 10 MG, QD, 2 TABLETS IN THE MORNING
     Route: 065
     Dates: start: 201305
  6. SOLU-MEDROL [Suspect]
     Indication: B-CELL PROLYMPHOCYTIC LEUKAEMIA
     Dosage: 20 MG, 3X/W
     Route: 042
     Dates: start: 20130304
  7. PENTACARINAT [Concomitant]
     Indication: PROPHYLAXIS
     Dosage: UNK
     Route: 065

REACTIONS (4)
  - Colitis [Recovered/Resolved]
  - Cardiac failure [Unknown]
  - Pneumocystis jirovecii pneumonia [Recovered/Resolved]
  - Febrile neutropenia [Unknown]
